FAERS Safety Report 8900956 (Version 1)
Quarter: 2012Q4

REPORT INFORMATION
  Report Type: 
  Country: IN (occurrence: IN)
  Receive Date: 20121109
  Receipt Date: 20121109
  Transmission Date: 20130627
  Serious: Yes (Hospitalization)
  Sender: FDA-Public Use
  Company Number: IN-SANOFI-AVENTIS-2012SA080529

PATIENT
  Age: 18 Year
  Sex: Male

DRUGS (5)
  1. RIFAMPICIN [Suspect]
     Indication: MILIARY TUBERCULOSIS
     Route: 065
  2. ISONIAZID [Suspect]
     Indication: MILIARY TUBERCULOSIS
     Route: 065
  3. PYRAZINAMIDE [Suspect]
     Indication: MILIARY TUBERCULOSIS
     Route: 065
  4. ETHAMBUTOL [Suspect]
     Indication: MILIARY TUBERCULOSIS
     Route: 065
  5. ANTIBIOTICS [Concomitant]
     Dosage: 4 courses

REACTIONS (12)
  - Disseminated tuberculosis [Recovered/Resolved]
  - Condition aggravated [Unknown]
  - Paradoxical drug reaction [Unknown]
  - Dyspnoea [Recovered/Resolved]
  - Cough [Recovered/Resolved]
  - Pyrexia [Recovered/Resolved]
  - Heart rate increased [Recovered/Resolved]
  - Red blood cell sedimentation rate increased [Recovered/Resolved]
  - Respiratory rate increased [Recovered/Resolved]
  - Breath sounds abnormal [Recovered/Resolved]
  - Hypoxia [Recovered/Resolved]
  - Respiratory alkalosis [Recovered/Resolved]
